FAERS Safety Report 15430683 (Version 12)
Quarter: 2022Q4

REPORT INFORMATION
  Report Type: Spontaneous
  Country: AU (occurrence: AU)
  Receive Date: 20180926
  Receipt Date: 20221229
  Transmission Date: 20230113
  Serious: Yes (Hospitalization, Other)
  Sender: FDA-Public Use
  Company Number: AU-PFIZER INC-2018381092

PATIENT
  Age: 30 Year
  Sex: Male

DRUGS (39)
  1. GENTAMICIN SULFATE [Suspect]
     Active Substance: GENTAMICIN SULFATE
     Indication: Bruton^s agammaglobulinaemia
     Dosage: UNK
     Route: 055
     Dates: start: 201209, end: 2015
  2. GENTAMICIN SULFATE [Suspect]
     Active Substance: GENTAMICIN SULFATE
     Dosage: TWICE DAILY ON 5 DAYS A MONTH
     Route: 055
     Dates: start: 20150902
  3. GENTAMICIN SULFATE [Suspect]
     Active Substance: GENTAMICIN SULFATE
     Dosage: 360 VIALS (OVER A YEAR^S SUPPLY)
     Route: 055
     Dates: start: 2016
  4. GENTAMICIN SULFATE [Suspect]
     Active Substance: GENTAMICIN SULFATE
     Dosage: UNK
     Route: 055
     Dates: start: 2016, end: 2017
  5. GENTAMICIN SULFATE [Suspect]
     Active Substance: GENTAMICIN SULFATE
     Dosage: 2 AMPOULES IN NEBULISER, 2X/DAY
  6. GENTAMICIN SULFATE [Suspect]
     Active Substance: GENTAMICIN SULFATE
     Dosage: UNK
     Dates: start: 201601, end: 201701
  7. GENTAMICIN SULFATE [Suspect]
     Active Substance: GENTAMICIN SULFATE
     Dosage: UNK
     Dates: start: 201702, end: 20171009
  8. GENTAMICIN SULFATE [Suspect]
     Active Substance: GENTAMICIN SULFATE
     Dosage: UNK
  9. GENTAMICIN SULFATE [Suspect]
     Active Substance: GENTAMICIN SULFATE
     Dosage: UNK
  10. GENTAMICIN SULFATE [Suspect]
     Active Substance: GENTAMICIN SULFATE
     Dosage: UNK
  11. AMOXICILLIN\CLAVULANATE POTASSIUM [Concomitant]
     Active Substance: AMOXICILLIN\CLAVULANATE POTASSIUM
     Dosage: UNK
  12. MICONAZOLE [Concomitant]
     Active Substance: MICONAZOLE
     Dosage: UNK
  13. ERYTHROMYCIN [Concomitant]
     Active Substance: ERYTHROMYCIN
     Dosage: 400 MG, UNK
     Route: 048
  14. EPIDUO FORTE [Concomitant]
     Active Substance: ADAPALENE\BENZOYL PEROXIDE
     Dosage: UNK
  15. CLOTRIMAZOLE\HYDROCORTISONE [Concomitant]
     Active Substance: CLOTRIMAZOLE\HYDROCORTISONE
     Dosage: UNK
  16. CLIOQUINOL\FLUMETHASONE [Concomitant]
     Active Substance: CLIOQUINOL\FLUMETHASONE
     Dosage: UNK
  17. NORFLOXACIN [Concomitant]
     Active Substance: NORFLOXACIN
     Dosage: UNK
  18. HYDROXYCHLOROQUINE SULFATE [Concomitant]
     Active Substance: HYDROXYCHLOROQUINE SULFATE
     Dosage: UNK
  19. BACTRIM [Concomitant]
     Active Substance: SULFAMETHOXAZOLE\TRIMETHOPRIM
     Dosage: UNK
  20. XOLAIR [Concomitant]
     Active Substance: OMALIZUMAB
     Dosage: UNK
  21. PROPECIA [Concomitant]
     Active Substance: FINASTERIDE
     Indication: Alopecia
     Dosage: UNK
  22. EMLA [Concomitant]
     Active Substance: LIDOCAINE\PRILOCAINE
     Dosage: APPLY TO THE SELECTED AREA ONE HOUR BEFORE PROCEDURE
     Route: 061
  23. HUMAN IMMUNOGLOBULIN G [Concomitant]
     Active Substance: HUMAN IMMUNOGLOBULIN G
     Dosage: 800 MG, 5 ML INJECTIONS INJECT 800MG (5ML) AS DIRECTED FIVE TIMES A WEEK
  24. HUMAN IMMUNOGLOBULIN G [Concomitant]
     Active Substance: HUMAN IMMUNOGLOBULIN G
     Dosage: UNK, MONTHLY
  25. VALACICLOVIR RBX [Concomitant]
     Dosage: 500 MG, 2X/DAY AS DIRECTED
  26. HYDROXYCHLOROQUINE [Concomitant]
     Active Substance: HYDROXYCHLOROQUINE
     Dosage: UNK
  27. CIMETIDINE [Concomitant]
     Active Substance: CIMETIDINE
     Dosage: UNK
  28. DOXEPIN [Concomitant]
     Active Substance: DOXEPIN
     Dosage: UNK
  29. TRIAMCINOLONE [Concomitant]
     Active Substance: TRIAMCINOLONE
     Dosage: UNK
  30. SULFASALAZINE [Concomitant]
     Active Substance: SULFASALAZINE
     Dosage: UNK
  31. ENOXAPARIN SODIUM [Concomitant]
     Active Substance: ENOXAPARIN SODIUM
     Dosage: UNK
  32. PREDNISONE [Concomitant]
     Active Substance: PREDNISONE
     Dosage: UNK
  33. PROMETHAZINE [Concomitant]
     Active Substance: PROMETHAZINE HYDROCHLORIDE
     Dosage: UNK
  34. HYDROCORTISONE SODIUM SUCCINATE [Concomitant]
     Active Substance: HYDROCORTISONE SODIUM SUCCINATE
     Dosage: UNK
  35. DEXTRAN 70/HYPROMELLOSE [Concomitant]
     Dosage: UNK
  36. METHOTREXATE [Concomitant]
     Active Substance: METHOTREXATE
     Dosage: UNK
  37. OXYCODONE [Concomitant]
     Active Substance: OXYCODONE
     Dosage: UNK
  38. HYDROCORTISONE ACETATE [Concomitant]
     Active Substance: HYDROCORTISONE ACETATE
     Dosage: UNK
  39. ERYTHROMYCIN ETHYLSUCCINATE [Concomitant]
     Active Substance: ERYTHROMYCIN ETHYLSUCCINATE
     Dosage: UNK

REACTIONS (75)
  - Sepsis [Unknown]
  - Salmonellosis [Unknown]
  - Thrombosis [Recovered/Resolved]
  - Angioedema [Recovered/Resolved]
  - Diverticulitis [Unknown]
  - Neoplasm malignant [Unknown]
  - Pneumonitis [Unknown]
  - Erectile dysfunction [Unknown]
  - Chloroma [Recovered/Resolved]
  - Urticaria chronic [Recovered/Resolved]
  - Rash erythematous [Recovered/Resolved]
  - Jaundice [Unknown]
  - Malaise [Unknown]
  - Respiratory tract infection [Recovered/Resolved]
  - Hypersensitivity [Unknown]
  - Sinusitis [Unknown]
  - Bronchospasm [Recovered/Resolved]
  - Weight decreased [Unknown]
  - Hepatic mass [Unknown]
  - Hypotonia [Unknown]
  - Asthenia [Unknown]
  - Infertility male [Recovered/Resolved]
  - Diarrhoea [Recovering/Resolving]
  - Alopecia [Unknown]
  - Depression [Unknown]
  - Toxicity to various agents [Unknown]
  - Gangrene [Unknown]
  - Urticarial vasculitis [Unknown]
  - Aplastic anaemia [Unknown]
  - Skin wrinkling [Unknown]
  - Panic attack [Unknown]
  - Acute graft versus host disease [Unknown]
  - Pain [Unknown]
  - Anxiety [Not Recovered/Not Resolved]
  - Abdominal pain [Recovered/Resolved]
  - Helicobacter infection [Unknown]
  - Blood immunoglobulin E decreased [Unknown]
  - Lethargy [Not Recovered/Not Resolved]
  - Chronic fatigue syndrome [Not Recovered/Not Resolved]
  - Loss of personal independence in daily activities [Not Recovered/Not Resolved]
  - Feeling abnormal [Unknown]
  - Memory impairment [Not Recovered/Not Resolved]
  - Disturbance in attention [Not Recovered/Not Resolved]
  - Hepatomegaly [Unknown]
  - Sperm concentration decreased [Unknown]
  - Incorrect route of product administration [Unknown]
  - Overdose [Unknown]
  - Nausea [Not Recovered/Not Resolved]
  - Anal rash [Unknown]
  - Proctalgia [Unknown]
  - Irritable bowel syndrome [Unknown]
  - Gastrooesophageal reflux disease [Not Recovered/Not Resolved]
  - Hepatic steatosis [Unknown]
  - Poor quality sleep [Unknown]
  - Mood disorder due to a general medical condition [Unknown]
  - Decreased appetite [Unknown]
  - Recalled product administered [Unknown]
  - Liver function test abnormal [Recovered/Resolved]
  - Loss of personal independence in daily activities [Unknown]
  - Exercise tolerance decreased [Unknown]
  - Dyspnoea [Unknown]
  - Tryptase increased [Unknown]
  - Rash maculo-papular [Unknown]
  - Eosinophilia [Unknown]
  - Abdominal distension [Unknown]
  - Face oedema [Unknown]
  - Drug ineffective [Unknown]
  - Lipoatrophy [Unknown]
  - Folliculitis [Unknown]
  - Scrotal dermatitis [Recovered/Resolved]
  - Pruritus [Unknown]
  - Respiratory tract irritation [Recovered/Resolved]
  - Irritability [Unknown]
  - Aggression [Unknown]
  - Memory impairment [Unknown]

NARRATIVE: CASE EVENT DATE: 20160101
